FAERS Safety Report 6291884-3 (Version None)
Quarter: 2009Q3

REPORT INFORMATION
  Report Type: 
  Country: None (occurrence: None)
  Receive Date: 20090729
  Receipt Date: 20090727
  Transmission Date: 20100115
  Serious: Yes (Life-Threatening)
  Sender: FDA-Public Use
  Company Number: 2009TJ0081FU1

PATIENT
  Age: 5 Year
  Sex: Female

DRUGS (2)
  1. EPINEPHRINE [Suspect]
     Indication: HYPERSENSITIVITY
     Dosage: 0.3 MG, AS NEEDED
     Dates: start: 20090411, end: 20090411
  2. CETIRIZINE [Concomitant]

REACTIONS (2)
  - DEVICE FAILURE [None]
  - INJECTION SITE HAEMATOMA [None]
